FAERS Safety Report 5404616-5 (Version None)
Quarter: 2007Q3

REPORT INFORMATION
  Report Type: 
  Country: None (occurrence: None)
  Receive Date: 20070802
  Receipt Date: 20070723
  Transmission Date: 20080115
  Serious: Yes (Disabling, Other)
  Sender: FDA-Public Use
  Company Number: US-GENENTECH-245194

PATIENT
  Age: 59 Year
  Sex: Female

DRUGS (3)
  1. BEVACIZUMAB [Suspect]
     Indication: OVARIAN CANCER RECURRENT
     Dosage: 5 MG/KG, UNK
  2. PACLITAXEL [Suspect]
     Indication: OVARIAN CANCER RECURRENT
  3. NAPROXEN [Concomitant]
     Indication: ARTHRITIS

REACTIONS (1)
  - OSTEOARTHRITIS [None]
